FAERS Safety Report 21624359 (Version 1)
Quarter: 2022Q4

REPORT INFORMATION
  Report Type: Spontaneous
  Country: US (occurrence: US)
  Receive Date: 20221121
  Receipt Date: 20221121
  Transmission Date: 20230113
  Serious: Yes (Life-Threatening, Other)
  Sender: FDA-Public Use
  Company Number: US-BRACCO-2022US01399

PATIENT
  Age: 55 Year
  Sex: Male

DRUGS (1)
  1. LUMASON [Suspect]
     Active Substance: SULFUR HEXAFLUORIDE
     Indication: Echocardiogram
     Dosage: 3 ML, SINGLE
     Route: 042
     Dates: start: 20220410, end: 20220410

REACTIONS (9)
  - Pseudostroke [Recovered/Resolved]
  - Depressed level of consciousness [Recovered/Resolved]
  - Feeling hot [Recovered/Resolved]
  - Hyperhidrosis [Recovered/Resolved]
  - Nausea [Recovered/Resolved]
  - Incontinence [Recovered/Resolved]
  - Hypotension [Recovered/Resolved]
  - Disorientation [Recovered/Resolved]
  - Cold sweat [Recovered/Resolved]

NARRATIVE: CASE EVENT DATE: 20220410
